FAERS Safety Report 13855638 (Version 1)
Quarter: 2017Q3

REPORT INFORMATION
  Report Type: Spontaneous
  Country: US (occurrence: US)
  Receive Date: 20170810
  Receipt Date: 20170810
  Transmission Date: 20171127
  Serious: No
  Sender: FDA-Public Use
  Company Number: US-VIFOR (INTERNATIONAL) INC.-VIT-2017-05740

PATIENT
  Age: 61 Year
  Sex: Male

DRUGS (1)
  1. VELTASSA [Suspect]
     Active Substance: PATIROMER
     Indication: BLOOD POTASSIUM INCREASED
     Route: 048
     Dates: start: 2017, end: 201703

REACTIONS (4)
  - Product taste abnormal [Unknown]
  - Blood potassium increased [Unknown]
  - Product quality issue [Unknown]
  - Product physical issue [Unknown]

NARRATIVE: CASE EVENT DATE: 201705
